FAERS Safety Report 12304324 (Version 2)
Quarter: 2016Q3

REPORT INFORMATION
  Report Type: Spontaneous
  Country: JP (occurrence: JP)
  Receive Date: 20160426
  Receipt Date: 20160706
  Transmission Date: 20161109
  Serious: Yes (Hospitalization)
  Sender: FDA-Public Use
  Company Number: JP-ROCHE-1747203

PATIENT
  Age: 74 Year
  Sex: Male
  Weight: 63 kg

DRUGS (13)
  1. LUCENTIS [Suspect]
     Active Substance: RANIBIZUMAB
     Route: 050
     Dates: start: 20160204, end: 20160204
  2. LOXONIN [Concomitant]
     Active Substance: LOXOPROFEN SODIUM
     Route: 048
  3. DILTIAZEM. [Concomitant]
     Active Substance: DILTIAZEM
     Route: 048
  4. SELBEX [Concomitant]
     Active Substance: TEPRENONE
     Route: 048
  5. LUCENTIS [Suspect]
     Active Substance: RANIBIZUMAB
     Indication: RETINAL VEIN OCCLUSION
     Route: 050
     Dates: start: 20150625
  6. LYRICA [Concomitant]
     Active Substance: PREGABALIN
     Route: 048
  7. ALLOPURINOL. [Concomitant]
     Active Substance: ALLOPURINOL
     Route: 048
  8. LIMAPROST ALFADEX [Concomitant]
     Active Substance: LIMAPROST
     Route: 048
  9. MUCOSTA [Concomitant]
     Active Substance: REBAMIPIDE
     Route: 048
  10. LUCENTIS [Suspect]
     Active Substance: RANIBIZUMAB
     Route: 050
     Dates: start: 20151222
  11. EYLEA [Concomitant]
     Active Substance: AFLIBERCEPT
     Route: 065
     Dates: start: 20150903
  12. LUCENTIS [Suspect]
     Active Substance: RANIBIZUMAB
     Indication: MACULAR OEDEMA
     Route: 050
     Dates: start: 20150730
  13. MECOBALAMIN [Concomitant]
     Active Substance: METHYLCOBALAMIN
     Route: 048

REACTIONS (1)
  - Myocardial infarction [Recovering/Resolving]

NARRATIVE: CASE EVENT DATE: 20160321
